FAERS Safety Report 4943991-2 (Version None)
Quarter: 2006Q1

REPORT INFORMATION
  Report Type: 
  Country: None (occurrence: None)
  Receive Date: 20060310
  Receipt Date: 20060302
  Transmission Date: 20060701
  Serious: Yes (Other)
  Sender: FDA-Public Use
  Company Number: A0596373A

PATIENT
  Sex: Male

DRUGS (1)
  1. WELLBUTRIN [Suspect]

REACTIONS (2)
  - MYOCLONIC EPILEPSY [None]
  - MYOCLONUS [None]
